FAERS Safety Report 18733923 (Version 2)
Quarter: 2021Q2

REPORT INFORMATION
  Report Type: Spontaneous
  Country: ZA (occurrence: ZA)
  Receive Date: 20210113
  Receipt Date: 20210402
  Transmission Date: 20210717
  Serious: Yes (Death, Other)
  Sender: FDA-Public Use
  Company Number: ZA-ABBVIE-21K-143-3728054-00

PATIENT
  Age: 79 Year
  Sex: Male

DRUGS (1)
  1. VENCLEXTA [Suspect]
     Active Substance: VENETOCLAX
     Indication: CHRONIC LYMPHOCYTIC LEUKAEMIA
     Dosage: STARTER PACK
     Route: 048
     Dates: start: 20201215, end: 20210107

REACTIONS (4)
  - Central nervous system lesion [Unknown]
  - Thrombocytopenia [Unknown]
  - Anaemia [Unknown]
  - Brain abscess [Fatal]

NARRATIVE: CASE EVENT DATE: 20201229
